FAERS Safety Report 6558819-7 (Version None)
Quarter: 2010Q1

REPORT INFORMATION
  Report Type: 
  Country: None (occurrence: None)
  Receive Date: 20100129
  Receipt Date: 20100119
  Transmission Date: 20100710
  Serious: Yes (Other)
  Sender: FDA-Public Use
  Company Number: PHEH2009US11271

PATIENT
  Sex: Female
  Weight: 69.841 kg

DRUGS (6)
  1. EXJADE [Suspect]
     Indication: ANAEMIA
     Dosage: 500 MG, QD
     Route: 048
     Dates: start: 20081108
  2. EXJADE [Suspect]
     Indication: IRON OVERLOAD
  3. EXJADE [Suspect]
     Indication: SERUM FERRITIN INCREASED
  4. EXJADE [Suspect]
     Indication: MYELODYSPLASTIC SYNDROME
  5. DESFERAL [Suspect]
     Dosage: 10 G/D X 5
     Dates: start: 20090303
  6. DECITABINE [Suspect]
     Indication: MYELODYSPLASTIC SYNDROME
     Dosage: 20 MG, QD X5
     Route: 042
     Dates: start: 20090511

REACTIONS (2)
  - BLOOD POTASSIUM DECREASED [None]
  - NAUSEA [None]
